FAERS Safety Report 7875059-X (Version None)
Quarter: 2011Q4

REPORT INFORMATION
  Report Type: 
  Country: None (occurrence: None)
  Receive Date: 20111031
  Receipt Date: 20111025
  Transmission Date: 20120403
  Serious: Yes (Hospitalization)
  Sender: FDA-Public Use
  Company Number: US-AMGEN-USASP2011055216

PATIENT
  Sex: Female

DRUGS (1)
  1. ENBREL [Suspect]
     Indication: RHEUMATOID ARTHRITIS
     Dosage: 25 MG, 2 TIMES/WK
     Dates: start: 20030101

REACTIONS (6)
  - ALLERGY TO ARTHROPOD STING [None]
  - COUGH [None]
  - NASOPHARYNGITIS [None]
  - NASAL CONGESTION [None]
  - RESPIRATORY TRACT CONGESTION [None]
  - MALAISE [None]
